FAERS Safety Report 24684817 (Version 1)
Quarter: 2024Q4

REPORT INFORMATION
  Report Type: Other
  Country: GB (occurrence: GB)
  Receive Date: 20241202
  Receipt Date: 20241202
  Transmission Date: 20250115
  Serious: Yes (Other)
  Sender: MACLEODS
  Company Number: None

PATIENT

DRUGS (2)
  1. ESCITALOPRAM [Suspect]
     Active Substance: ESCITALOPRAM OXALATE
     Indication: Mental disorder
     Dosage: PATIENT WAS ASKED BY GP TO INCREASE MY MEDICATION FROM 20MG TO 40MG
     Route: 065
  2. ESCITALOPRAM [Suspect]
     Active Substance: ESCITALOPRAM OXALATE
     Dosage: PATIENT WAS ASKED BY GP TO INCREASE MY MEDICATION FROM 20MG TO 40MG
     Route: 065
     Dates: start: 20241030

REACTIONS (2)
  - Menstruation delayed [Not Recovered/Not Resolved]
  - Insomnia [Not Recovered/Not Resolved]

NARRATIVE: CASE EVENT DATE: 20231030
